FAERS Safety Report 23585922 (Version 1)
Quarter: 2024Q1

REPORT INFORMATION
  Report Type: Spontaneous
  Country: CA (occurrence: CA)
  Receive Date: 20240301
  Receipt Date: 20240301
  Transmission Date: 20240410
  Serious: Yes (Other)
  Sender: FDA-Public Use
  Company Number: CA-SUN PHARMACEUTICAL INDUSTRIES LTD-2024R1-434043

PATIENT
  Age: 35 Year
  Sex: Male

DRUGS (1)
  1. TRAMADOL [Suspect]
     Active Substance: TRAMADOL\TRAMADOL HYDROCHLORIDE
     Indication: Abdominal pain
     Dosage: UNK
     Route: 042

REACTIONS (8)
  - Euphoric mood [Unknown]
  - Drug withdrawal syndrome [Unknown]
  - Drug dependence [Unknown]
  - Sexual dysfunction [Unknown]
  - Emotional distress [Unknown]
  - Drug use disorder [Unknown]
  - Depressive symptom [Unknown]
  - Suicidal ideation [Unknown]
